FAERS Safety Report 5806121-0 (Version None)
Quarter: 2008Q3

REPORT INFORMATION
  Report Type: 
  Country: None (occurrence: None)
  Receive Date: 20080710
  Receipt Date: 20080630
  Transmission Date: 20090109
  Serious: Yes (Other)
  Sender: FDA-Public Use
  Company Number: JP-MERCK-0807USA00229

PATIENT
  Age: 5 Year
  Sex: Male
  Weight: 20 kg

DRUGS (5)
  1. SINGULAIR [Suspect]
     Indication: ASTHMA
     Route: 048
     Dates: start: 20080614, end: 20080614
  2. HOKUNALIN [Suspect]
     Route: 061
     Dates: start: 20080614
  3. PERIACTIN [Suspect]
     Route: 048
     Dates: start: 20080614
  4. ASVERIN [Concomitant]
     Route: 048
     Dates: start: 20080614
  5. MUCODYNE [Concomitant]
     Route: 048
     Dates: start: 20080614

REACTIONS (5)
  - AGITATION [None]
  - CRYING [None]
  - PARASOMNIA [None]
  - SCREAMING [None]
  - SOMNOLENCE [None]
